FAERS Safety Report 8509289-0 (Version None)
Quarter: 2012Q3

REPORT INFORMATION
  Report Type: 
  Country: None (occurrence: None)
  Receive Date: 20120713
  Receipt Date: 20120705
  Transmission Date: 20120928
  Serious: Yes (Other)
  Sender: FDA-Public Use
  Company Number: US-ALEXION-A201200671

PATIENT
  Sex: Male

DRUGS (3)
  1. SOLIRIS [Suspect]
     Indication: PAROXYSMAL NOCTURNAL HAEMOGLOBINURIA
     Dosage: 600 MG, QW
     Route: 042
  2. SOLIRIS [Suspect]
     Dosage: 900 MG, QW
     Route: 042
  3. SOLIRIS [Suspect]
     Dosage: 1800 MG, Q2W
     Route: 042

REACTIONS (8)
  - CHRONIC MYELOID LEUKAEMIA [None]
  - HAPTOGLOBIN DECREASED [None]
  - FATIGUE [None]
  - HAEMATOCRIT DECREASED [None]
  - PLATELET COUNT INCREASED [None]
  - DIZZINESS [None]
  - HEADACHE [None]
  - HAEMOGLOBIN DECREASED [None]
